FAERS Safety Report 21972456 (Version 2)
Quarter: 2023Q1

REPORT INFORMATION
  Report Type: Spontaneous
  Country: US (occurrence: None)
  Receive Date: 20230209
  Receipt Date: 20230322
  Transmission Date: 20230418
  Serious: No
  Sender: FDA-Public Use
  Company Number: 2023A023351

PATIENT
  Age: 47 Year
  Sex: Female
  Weight: 62.6 kg

DRUGS (1)
  1. PULMICORT FLEXHALER [Suspect]
     Active Substance: BUDESONIDE
     Indication: Asthma
     Route: 055
     Dates: start: 20230121

REACTIONS (6)
  - Asthma [Unknown]
  - Speech disorder [Recovered/Resolved]
  - Device malfunction [Unknown]
  - Drug dose omission by device [Unknown]
  - Device delivery system issue [Unknown]
  - Device use issue [Unknown]

NARRATIVE: CASE EVENT DATE: 20190101
